FAERS Safety Report 20232985 (Version 1)
Quarter: 2021Q4

REPORT INFORMATION
  Report Type: Report from Study
  Country: US (occurrence: US)
  Receive Date: 20211227
  Receipt Date: 20211227
  Transmission Date: 20220303
  Serious: Yes (Death, Hospitalization, Other)
  Sender: FDA-Public Use
  Company Number: US-ELI_LILLY_AND_COMPANY-US202111008443

PATIENT

DRUGS (3)
  1. ZYPREXA RELPREVV [Suspect]
     Active Substance: OLANZAPINE PAMOATE
     Indication: Product used for unknown indication
     Dosage: 210 MG, MONTHLY (1/M)
     Route: 065
     Dates: start: 20160607, end: 20211018
  2. ZYPREXA RELPREVV [Suspect]
     Active Substance: OLANZAPINE PAMOATE
     Indication: Product used for unknown indication
     Dosage: 210 MG, MONTHLY (1/M)
     Route: 065
     Dates: start: 20160607, end: 20211018
  3. ZYPREXA RELPREVV [Suspect]
     Active Substance: OLANZAPINE PAMOATE
     Indication: Product used for unknown indication
     Dosage: 210 MG, MONTHLY (1/M)
     Route: 065
     Dates: start: 20160607, end: 20211018

REACTIONS (3)
  - Staphylococcal sepsis [Fatal]
  - Ureterolithiasis [Unknown]
  - Urinary tract infection [Unknown]
